FAERS Safety Report 7055614-X (Version None)
Quarter: 2010Q4

REPORT INFORMATION
  Report Type: 
  Country: None (occurrence: None)
  Receive Date: 20101021
  Receipt Date: 20101014
  Transmission Date: 20110411
  Serious: Yes (Hospitalization)
  Sender: FDA-Public Use
  Company Number: US-BRISTOL-MYERS SQUIBB COMPANY-15271000

PATIENT
  Age: 77 Year
  Sex: Male
  Weight: 63 kg

DRUGS (8)
  1. CETUXIMAB [Suspect]
     Indication: NON-SMALL CELL LUNG CANCER
     Dosage: SECOND AND MOST RECENT INF :18AUG2010,DURATION:7DAYS,INF:2 INTERRUPTED ON 25AUG10
     Route: 042
     Dates: start: 20100811
  2. CARBOPLATIN [Suspect]
     Indication: NON-SMALL CELL LUNG CANCER
     Dosage: INITIAL AND ONLY INF ON 11AUG10 INTERRUPTED ON 25AUG10
     Route: 042
     Dates: start: 20100811
  3. GEMCITABINE [Suspect]
     Indication: NON-SMALL CELL LUNG CANCER
     Dosage: 2ND AND MOST RECENT INF:18AUG2010,DURATION:7DAYS;INF:2 INTERRUPTED ON 25AUG10
     Route: 042
     Dates: start: 20100811
  4. VICODIN [Concomitant]
     Route: 048
  5. ADVAIR DISKUS 100/50 [Concomitant]
     Dosage: 1DF-250/50(UNITS NOT SPECIFIED) AS DIRECTED
     Route: 055
  6. AMLODIPINE [Concomitant]
     Dosage: HELD ON 18AUG10 5 MG AS DIRECTED
     Route: 048
  7. PLAVIX [Concomitant]
     Dosage: AS DIRECTED
     Route: 048
  8. PRAVACHOL [Concomitant]
     Dosage: AS DIRECTED
     Route: 048

REACTIONS (2)
  - NEUTROPENIA [None]
  - THROMBOCYTOPENIA [None]
